FAERS Safety Report 5388883-2 (Version None)
Quarter: 2007Q3

REPORT INFORMATION
  Report Type: 
  Country: None (occurrence: None)
  Receive Date: 20070717
  Receipt Date: 20070706
  Transmission Date: 20080115
  Serious: Yes (Hospitalization)
  Sender: FDA-Public Use
  Company Number: GR-ABBOTT-07P-066-0373835-00

PATIENT
  Sex: Male
  Weight: 101 kg

DRUGS (9)
  1. ZEMPLAR [Suspect]
     Indication: HYPERPARATHYROIDISM SECONDARY
     Route: 042
     Dates: start: 20070310
  2. IRON DEXTRAN [Concomitant]
     Indication: ANAEMIA
     Route: 042
     Dates: start: 20061001
  3. EPOETIN BETA [Concomitant]
     Indication: ANAEMIA
     Dosage: WITH HEMODIALYSIS
     Route: 042
     Dates: start: 20061001
  4. NEUROBION [Concomitant]
     Indication: HYPOVITAMINOSIS
     Dosage: WITH HEMODIALYSIS
     Route: 042
     Dates: start: 20061001
  5. INTELECTA [Concomitant]
     Indication: CARNITINE DEFICIENCY
     Route: 042
     Dates: start: 20061001
  6. HEPARIN-FRACTION, SODIUM SALT [Concomitant]
     Indication: ANTICOAGULANT THERAPY
     Dosage: HEMODIALYSIS
     Route: 042
     Dates: start: 20061001
  7. RIFAXIMIN [Concomitant]
     Indication: HEPATIC ENCEPHALOPATHY
     Route: 048
     Dates: start: 20061101
  8. ATENOLOL [Concomitant]
     Indication: HYPERTENSION
     Route: 048
     Dates: start: 20061101
  9. OMEPRAZOLE [Concomitant]
     Indication: ABDOMINAL PAIN UPPER
     Route: 048
     Dates: start: 20061101

REACTIONS (2)
  - CIRRHOSIS ALCOHOLIC [None]
  - COMA [None]
